FAERS Safety Report 23237011 (Version 1)
Quarter: 2023Q4

REPORT INFORMATION
  Report Type: Spontaneous
  Country: US (occurrence: US)
  Receive Date: 20231128
  Receipt Date: 20231128
  Transmission Date: 20240110
  Serious: Yes (Other)
  Sender: FDA-Public Use
  Company Number: US-ABBVIE-5510109

PATIENT
  Sex: Female

DRUGS (1)
  1. REFRESH PLUS [Suspect]
     Active Substance: CARBOXYMETHYLCELLULOSE SODIUM
     Indication: Product used for unknown indication
     Dosage: CMC 5MG/ML SOL UNIT DOSE
     Route: 047

REACTIONS (7)
  - Anaphylactic reaction [Unknown]
  - Hypertension [Unknown]
  - COVID-19 [Unknown]
  - Chemical burns of eye [Unknown]
  - Headache [Unknown]
  - Drug hypersensitivity [Unknown]
  - Post-acute COVID-19 syndrome [Unknown]
